FAERS Safety Report 4578698-7 (Version None)
Quarter: 2005Q1

REPORT INFORMATION
  Report Type: 
  Country: None (occurrence: None)
  Receive Date: 20050211
  Receipt Date: 20050131
  Transmission Date: 20050727
  Serious: Yes (Disabling)
  Sender: FDA-Public Use
  Company Number: CH-ROCHE-394219

PATIENT
  Age: 36 Year
  Sex: Male
  Weight: 70 kg

DRUGS (6)
  1. INVIRASE [Suspect]
     Route: 048
     Dates: start: 20040701
  2. REYATAZ [Suspect]
     Route: 065
     Dates: start: 20040701
  3. VIREAD [Concomitant]
     Route: 048
  4. 3TC [Concomitant]
     Route: 048
  5. SERESTA [Concomitant]
     Route: 048
  6. NORVIR [Concomitant]
     Route: 048

REACTIONS (1)
  - ASEPTIC NECROSIS BONE [None]
